FAERS Safety Report 11467728 (Version 1)
Quarter: 2015Q3

REPORT INFORMATION
  Report Type: Spontaneous
  Country: US (occurrence: US)
  Receive Date: 20150908
  Receipt Date: 20150908
  Transmission Date: 20151125
  Serious: Yes (Other)
  Sender: FDA-Public Use
  Company Number: US-ACTAVIS-2015-18457

PATIENT
  Age: 57 Year
  Sex: Female

DRUGS (15)
  1. FENTANYL-75 (WATSON LABORATORIES) [Suspect]
     Active Substance: FENTANYL
     Indication: SPINAL FUSION SURGERY
     Dosage: 75 MCG, EVERY THREE DAYS
     Route: 062
     Dates: start: 20150805, end: 20150827
  2. SEREVENT DISKUS [Concomitant]
     Active Substance: SALMETEROL XINAFOATE
     Indication: CHRONIC OBSTRUCTIVE PULMONARY DISEASE
  3. ALBUTEROL                          /00139501/ [Concomitant]
     Active Substance: ALBUTEROL
     Indication: ASTHMA
  4. FENTANYL-75 (WATSON LABORATORIES) [Suspect]
     Active Substance: FENTANYL
     Indication: INTERVERTEBRAL DISC PROTRUSION
  5. TIZANIDINE. [Concomitant]
     Active Substance: TIZANIDINE
     Indication: INSOMNIA
  6. NORVASC [Concomitant]
     Active Substance: AMLODIPINE BESYLATE
     Indication: HYPERTENSION
  7. TRAZODONE [Concomitant]
     Active Substance: TRAZODONE HYDROCHLORIDE
     Indication: INSOMNIA
  8. VALIUM [Concomitant]
     Active Substance: DIAZEPAM
  9. FLOVENT [Concomitant]
     Active Substance: FLUTICASONE PROPIONATE
     Indication: CHRONIC OBSTRUCTIVE PULMONARY DISEASE
  10. FENTANYL-50 (WATSON LABORATORIES) [Suspect]
     Active Substance: FENTANYL
     Indication: NECK PAIN
     Dosage: 50 MCG, EVERY THREE DAYS
     Route: 062
     Dates: start: 20150724
  11. FENTANYL-50 (WATSON LABORATORIES) [Suspect]
     Active Substance: FENTANYL
     Indication: BACK PAIN
  12. NORCO [Concomitant]
     Active Substance: ACETAMINOPHEN\HYDROCODONE BITARTRATE
     Indication: PAIN
     Dosage: UNK
  13. SEREVENT DISKUS [Concomitant]
     Active Substance: SALMETEROL XINAFOATE
     Indication: ASTHMA
  14. ALBUTEROL                          /00139501/ [Concomitant]
     Active Substance: ALBUTEROL
     Indication: CHRONIC OBSTRUCTIVE PULMONARY DISEASE
  15. FLOVENT [Concomitant]
     Active Substance: FLUTICASONE PROPIONATE
     Indication: ASTHMA

REACTIONS (12)
  - Overdose [Recovering/Resolving]
  - Disorientation [Recovering/Resolving]
  - Panic attack [Recovering/Resolving]
  - Neck pain [Recovering/Resolving]
  - Confusional state [Recovering/Resolving]
  - Back pain [Recovering/Resolving]
  - Dysarthria [Recovering/Resolving]
  - Muscle twitching [Recovering/Resolving]
  - Pruritus [Not Recovered/Not Resolved]
  - Asthenia [Recovering/Resolving]
  - Anxiety [Recovering/Resolving]
  - Hot flush [Recovering/Resolving]

NARRATIVE: CASE EVENT DATE: 20150827
